FAERS Safety Report 16460197 (Version 1)
Quarter: 2019Q2

REPORT INFORMATION
  Report Type: Spontaneous
  Country: CA (occurrence: CA)
  Receive Date: 20190620
  Receipt Date: 20190620
  Transmission Date: 20190711
  Serious: Yes (Other)
  Sender: FDA-Public Use
  Company Number: CA-TEVA-2019-CA-1065675

PATIENT
  Sex: Male

DRUGS (18)
  1. NAPROXEN  EC [Suspect]
     Active Substance: NAPROXEN
     Indication: PRODUCT USED FOR UNKNOWN INDICATION
     Route: 065
  2. BRILINTA [Concomitant]
     Active Substance: TICAGRELOR
  3. CIPRO [Suspect]
     Active Substance: CIPROFLOXACIN HYDROCHLORIDE
     Indication: PRODUCT USED FOR UNKNOWN INDICATION
     Dosage: 500 MILLIGRAM DAILY;
     Route: 065
  4. INFLECTRA [Suspect]
     Active Substance: INFLIXIMAB-DYYB
     Indication: COLITIS ULCERATIVE
     Dosage: 8.9286 MILLIGRAM DAILY;
     Route: 042
  5. ASPIRIN. [Concomitant]
     Active Substance: ASPIRIN
  6. BISOPROLOL [Concomitant]
     Active Substance: BISOPROLOL
  7. FLOMAX [Concomitant]
     Active Substance: TAMSULOSIN HYDROCHLORIDE
  8. MULTIVITAMINE(S) [Concomitant]
     Active Substance: VITAMINS
  9. NITROGLYCERIN. [Concomitant]
     Active Substance: NITROGLYCERIN
  10. ROSUVASTATIN. [Concomitant]
     Active Substance: ROSUVASTATIN
  11. COVERSYL [Concomitant]
     Active Substance: PERINDOPRIL
  12. CRESTOR [Concomitant]
     Active Substance: ROSUVASTATIN CALCIUM
  13. AMIODARONE [Concomitant]
     Active Substance: AMIODARONE
  14. METOPROLOL. [Concomitant]
     Active Substance: METOPROLOL
  15. PANTOPRAZOLE [Concomitant]
     Active Substance: PANTOPRAZOLE
  16. CORTIMENT [HYDROCORTISONE ACETATE] [Suspect]
     Active Substance: HYDROCORTISONE ACETATE
     Route: 065
  17. CLOPIDOGREL [Concomitant]
     Active Substance: CLOPIDOGREL BISULFATE
  18. IMURAN [Concomitant]
     Active Substance: AZATHIOPRINE

REACTIONS (2)
  - Contraindicated product administered [Unknown]
  - Ulcer haemorrhage [Unknown]
